FAERS Safety Report 17318479 (Version 4)
Quarter: 2020Q1

REPORT INFORMATION
  Report Type: Report from Study
  Country: US (occurrence: US)
  Receive Date: 20200124
  Receipt Date: 20200309
  Transmission Date: 20200409
  Serious: Yes (Hospitalization)
  Sender: FDA-Public Use
  Company Number: US-ACTELION-A-NJ2020-200827

PATIENT
  Age: 47 Year
  Sex: Male
  Weight: 71.66 kg

DRUGS (9)
  1. MYCOPHENOLATE [Concomitant]
     Active Substance: MYCOPHENOLIC ACID
     Dosage: 500 MG, QD
  2. ADEMPAS [Suspect]
     Active Substance: RIOCIGUAT
     Indication: PULMONARY HYPERTENSION
     Dosage: 1.5 MG, QD
     Route: 065
     Dates: start: 20191226
  3. NIFEDIPINE. [Concomitant]
     Active Substance: NIFEDIPINE
  4. POTASSIUM CHLORIDE. [Concomitant]
     Active Substance: POTASSIUM CHLORIDE
     Dosage: 20 MEQ, BID
  5. OPSUMIT [Suspect]
     Active Substance: MACITENTAN
     Indication: PULMONARY ARTERIAL HYPERTENSION
     Dosage: 10 MG, QD
     Route: 048
     Dates: start: 20191227
  6. ELIQUIS [Concomitant]
     Active Substance: APIXABAN
  7. ESOMEPRAZOLE. [Concomitant]
     Active Substance: ESOMEPRAZOLE MAGNESIUM
     Dosage: 20 MG, BID
  8. PLAQUENIL [Concomitant]
     Active Substance: HYDROXYCHLOROQUINE SULFATE
     Dosage: 200 MG, QD
  9. FUROSEMIDE. [Concomitant]
     Active Substance: FUROSEMIDE
     Dosage: 20 MG, QD
     Dates: start: 20191223

REACTIONS (11)
  - Hepatic congestion [Recovered/Resolved]
  - Dyspnoea [Recovering/Resolving]
  - Cholecystitis [Recovered/Resolved]
  - Cholecystectomy [Recovered/Resolved]
  - Peritonitis [Recovered/Resolved]
  - Cholelithiasis [Recovered/Resolved]
  - Hepatomegaly [Recovered/Resolved]
  - Laparotomy [Recovered/Resolved]
  - Hypoglycaemia [Recovered/Resolved]
  - Gastrointestinal decompression [Recovered/Resolved]
  - Ileus [Recovered/Resolved]

NARRATIVE: CASE EVENT DATE: 202001
